FAERS Safety Report 20406085 (Version 1)
Quarter: 2022Q1

REPORT INFORMATION
  Report Type: Spontaneous
  Country: IN (occurrence: IN)
  Receive Date: 20220131
  Receipt Date: 20220131
  Transmission Date: 20220424
  Serious: Yes (Other)
  Sender: FDA-Public Use
  Company Number: IN-MLMSERVICE-20220118-3322347-1

PATIENT
  Age: 40 Year
  Sex: Male

DRUGS (3)
  1. DEXAMETHASONE [Suspect]
     Active Substance: DEXAMETHASONE
     Indication: COVID-19
     Route: 042
  2. PREDNISOLONE [Suspect]
     Active Substance: PREDNISOLONE
     Indication: COVID-19
     Route: 048
  3. OXYGEN [Concomitant]
     Active Substance: OXYGEN
     Indication: Supplementation therapy
     Dosage: VIA NON-REBREATHING MASK

REACTIONS (1)
  - Necrotising colitis [Recovered/Resolved]
